FAERS Safety Report 24958923 (Version 3)
Quarter: 2025Q2

REPORT INFORMATION
  Report Type: Report from Study
  Country: US (occurrence: US)
  Receive Date: 20250212
  Receipt Date: 20250614
  Transmission Date: 20250716
  Serious: Yes (Hospitalization, Other)
  Sender: TAKEDA
  Company Number: US-TAKEDA-2019TUS072504

PATIENT
  Age: 67 Year
  Sex: Female
  Weight: 62.132 kg

DRUGS (7)
  1. IXAZOMIB [Suspect]
     Active Substance: IXAZOMIB
     Indication: Amyloidosis
  2. IXAZOMIB [Suspect]
     Active Substance: IXAZOMIB
  3. IXAZOMIB [Suspect]
     Active Substance: IXAZOMIB
  4. IXAZOMIB [Suspect]
     Active Substance: IXAZOMIB
  5. IXAZOMIB [Suspect]
     Active Substance: IXAZOMIB
     Dosage: 2.3 MILLIGRAM, 1/WEEK
  6. IXAZOMIB [Suspect]
     Active Substance: IXAZOMIB
  7. CORTISONE [Concomitant]
     Active Substance: CORTISONE
     Indication: Back pain

REACTIONS (19)
  - Metastatic neoplasm [Not Recovered/Not Resolved]
  - Neuropathy peripheral [Unknown]
  - Anxiety [Unknown]
  - Renal disorder [Unknown]
  - Nasopharyngitis [Unknown]
  - Back pain [Not Recovered/Not Resolved]
  - Rash [Unknown]
  - Diarrhoea [Unknown]
  - Confusional state [Unknown]
  - Stress [Unknown]
  - Cardiac disorder [Unknown]
  - Gastrointestinal disorder [Unknown]
  - Protein total increased [Unknown]
  - Malaise [Unknown]
  - Arthropathy [Not Recovered/Not Resolved]
  - Feeling jittery [Unknown]
  - Cough [Unknown]
  - Headache [Not Recovered/Not Resolved]
  - Product dose omission issue [Unknown]

NARRATIVE: CASE EVENT DATE: 20200521
